FAERS Safety Report 12799358 (Version 2)
Quarter: 2016Q4

REPORT INFORMATION
  Report Type: Spontaneous
  Country: JP (occurrence: JP)
  Receive Date: 20160930
  Receipt Date: 20161004
  Transmission Date: 20170207
  Serious: Yes (Other)
  Sender: FDA-Public Use
  Company Number: JP-JNJFOC-20160927161

PATIENT
  Age: 8 Decade
  Sex: Female

DRUGS (4)
  1. DUROTEP [Suspect]
     Active Substance: FENTANYL
     Indication: PAIN
     Route: 062
  2. RISPERDAL [Interacting]
     Active Substance: RISPERIDONE
     Indication: DELIRIUM
     Dosage: 1
     Route: 048
     Dates: start: 20160924, end: 20160924
  3. DUROTEP [Suspect]
     Active Substance: FENTANYL
     Indication: PAIN
     Route: 062
  4. DUROTEP [Suspect]
     Active Substance: FENTANYL
     Indication: PAIN
     Route: 062

REACTIONS (9)
  - Blood pressure decreased [Recovering/Resolving]
  - Malaise [Not Recovered/Not Resolved]
  - Product use issue [Unknown]
  - Somnolence [Not Recovered/Not Resolved]
  - Depressed level of consciousness [Not Recovered/Not Resolved]
  - Exposure to extreme temperature [Unknown]
  - Drug interaction [Not Recovered/Not Resolved]
  - Off label use [Unknown]
  - Dysphagia [Not Recovered/Not Resolved]

NARRATIVE: CASE EVENT DATE: 20160924
